FAERS Safety Report 8987768 (Version 1)
Quarter: 2012Q4

REPORT INFORMATION
  Report Type: 
  Country: US (occurrence: US)
  Receive Date: 20121227
  Receipt Date: 20121227
  Transmission Date: 20130627
  Serious: No
  Sender: FDA-Public Use
  Company Number: US-PFIZER INC-2012326915

PATIENT
  Age: 85 Year
  Sex: Female
  Weight: 63.49 kg

DRUGS (1)
  1. PROTONIX [Suspect]
     Indication: DIGESTION IMPAIRED
     Dosage: 40 mg, 2x/day

REACTIONS (1)
  - Head injury [Unknown]
